FAERS Safety Report 23659714 (Version 3)
Quarter: 2024Q2

REPORT INFORMATION
  Report Type: Spontaneous
  Country: US (occurrence: US)
  Receive Date: 20240321
  Receipt Date: 20240528
  Transmission Date: 20240716
  Serious: Yes (Other)
  Sender: FDA-Public Use
  Company Number: US-PFIZER INC-PV202400037800

PATIENT
  Age: 83 Year
  Sex: Female
  Weight: 65.306 kg

DRUGS (1)
  1. ESTRING [Suspect]
     Active Substance: ESTRADIOL
     Dosage: STRENGTH: 7.5 MCG/24 HR

REACTIONS (2)
  - Parkinson^s disease [Unknown]
  - Illness [Unknown]
